FAERS Safety Report 10302216 (Version 1)
Quarter: 2014Q3

REPORT INFORMATION
  Report Type: Report from Study
  Country: US (occurrence: US)
  Receive Date: 20140714
  Receipt Date: 20140714
  Transmission Date: 20150326
  Serious: Yes (Hospitalization, Disabling)
  Sender: FDA-Public Use
  Company Number: US-SA-2014SA089519

PATIENT
  Age: 57 Year
  Sex: Female

DRUGS (3)
  1. LANTUS SOLOSTAR [Suspect]
     Active Substance: INSULIN GLARGINE
     Indication: DIABETES MELLITUS
     Dosage: DOSE:50 UNIT(S)
     Route: 065
     Dates: start: 201101
  2. SOLOSTAR [Concomitant]
     Active Substance: DEVICE
     Dates: start: 201101
  3. LANTUS SOLOSTAR [Suspect]
     Active Substance: INSULIN GLARGINE
     Indication: DIABETES MELLITUS
     Dosage: DOSE:21 UNIT(S)
     Route: 065

REACTIONS (7)
  - Cerebrovascular accident [Not Recovered/Not Resolved]
  - Back pain [Unknown]
  - Blood pressure increased [Unknown]
  - Speech disorder [Unknown]
  - Asthenia [Unknown]
  - Drug dose omission [Unknown]
  - Drug administration error [Unknown]

NARRATIVE: CASE EVENT DATE: 20140512
